FAERS Safety Report 7624831 (Version 3)
Quarter: 2014Q1

REPORT INFORMATION
  Report Type: Spontaneous
  Country: US (occurrence: US)
  Receive Date: 20101012
  Receipt Date: 20140116
  Transmission Date: 20141002
  Serious: Yes (Hospitalization, Other)
  Sender: FDA-Public Use
  Company Number: US-BAYER-201036262NA

PATIENT
  Age: 43 Year
  Sex: Female
  Weight: 68.03 kg

DRUGS (2)
  1. YAZ [Suspect]
     Indication: CONTRACEPTION
     Route: 048
     Dates: start: 2002, end: 20060615
  2. YASMIN [Suspect]
     Indication: CONTRACEPTION
     Route: 048
     Dates: start: 2002, end: 2006

REACTIONS (6)
  - Gallbladder disorder [None]
  - Abdominal pain upper [None]
  - Intra-abdominal haemorrhage [None]
  - Nausea [None]
  - Cholecystitis [None]
  - Biliary dyskinesia [None]
